FAERS Safety Report 20911625 (Version 2)
Quarter: 2022Q2

REPORT INFORMATION
  Report Type: Spontaneous
  Country: US (occurrence: US)
  Receive Date: 20220603
  Receipt Date: 20220608
  Transmission Date: 20220721
  Serious: No
  Sender: FDA-Public Use
  Company Number: US-PFIZER INC-202200787359

PATIENT
  Age: 72 Year
  Sex: Female
  Weight: 60.78 kg

DRUGS (4)
  1. ACCUPRIL [Suspect]
     Active Substance: QUINAPRIL HYDROCHLORIDE
     Dosage: UNK
  2. SIMVASTATIN [Concomitant]
     Active Substance: SIMVASTATIN
     Indication: Blood cholesterol increased
     Dosage: 20 MG
  3. NORVASC [Concomitant]
     Active Substance: AMLODIPINE BESYLATE
     Indication: Hypertension
     Dosage: 5 MG A DAY
  4. HYDROCHLOROTHIAZIDE + CAPTOPRIL [Concomitant]
     Indication: Hypertension
     Dosage: 12.5 MG, DAILY (12.5MG A DAY)

REACTIONS (2)
  - Recalled product administered [Unknown]
  - Nausea [Unknown]
